FAERS Safety Report 9660730 (Version 2)
Quarter: 2014Q2

REPORT INFORMATION
  Report Type: Spontaneous
  Country: US (occurrence: US)
  Receive Date: 20131031
  Receipt Date: 20140613
  Transmission Date: 20141212
  Serious: Yes (Other)
  Sender: FDA-Public Use
  Company Number: US-PFIZER INC-2013308707

PATIENT
  Age: 58 Year
  Sex: Female
  Weight: 61 kg

DRUGS (3)
  1. LIPITOR [Suspect]
     Indication: LOW DENSITY LIPOPROTEIN INCREASED
     Dosage: 40 MG, UNK
     Route: 048
     Dates: start: 1998, end: 2000
  2. LIPITOR [Suspect]
     Indication: CARDIOVASCULAR EVENT PROPHYLAXIS
     Dosage: 20 MG, UNK
     Dates: start: 2000, end: 2006
  3. LIPITOR [Suspect]
     Dosage: 10 MG, UNK
     Dates: start: 2006, end: 2012

REACTIONS (2)
  - Type 2 diabetes mellitus [Not Recovered/Not Resolved]
  - Impaired healing [Unknown]
